FAERS Safety Report 7472127-1 (Version None)
Quarter: 2011Q2

REPORT INFORMATION
  Report Type: 
  Country: None (occurrence: None)
  Receive Date: 20110511
  Receipt Date: 20110117
  Transmission Date: 20111010
  Serious: No
  Sender: FDA-Public Use
  Company Number: A0906495A

PATIENT
  Age: 25 Year
  Sex: Female

DRUGS (5)
  1. GABAPENTIN [Concomitant]
  2. TAMOXIFEN [Concomitant]
  3. TYKERB [Suspect]
     Indication: BREAST CANCER
     Dosage: 5CAP PER DAY
     Route: 048
     Dates: start: 20101213
  4. HERCEPTIN [Concomitant]
  5. AMBIEN [Concomitant]

REACTIONS (5)
  - PRURITUS [None]
  - FATIGUE [None]
  - ACNE [None]
  - RASH [None]
  - RASH PAPULAR [None]
